FAERS Safety Report 18303402 (Version 1)
Quarter: 2020Q3

REPORT INFORMATION
  Report Type: Spontaneous
  Country: FR (occurrence: FR)
  Receive Date: 20200923
  Receipt Date: 20200923
  Transmission Date: 20201103
  Serious: Yes (Hospitalization)
  Sender: FDA-Public Use
  Company Number: FR-PFIZER INC-2020363979

PATIENT
  Age: 45 Year
  Sex: Female
  Weight: 79 kg

DRUGS (2)
  1. TAZOCILLINE [Suspect]
     Active Substance: PIPERACILLIN SODIUM\TAZOBACTAM SODIUM
     Indication: FEBRILE BONE MARROW APLASIA
     Dosage: 12000 MG
     Route: 042
     Dates: start: 20200523, end: 20200603
  2. MEROPENEM ANHYDROUS [Suspect]
     Active Substance: MEROPENEM ANHYDROUS
     Indication: FEBRILE BONE MARROW APLASIA
     Dosage: 3000 MG
     Dates: start: 20200603, end: 20200610

REACTIONS (4)
  - Confusional state [Recovered/Resolved]
  - Disorientation [Recovered/Resolved]
  - Product use in unapproved indication [Unknown]
  - Off label use [Unknown]

NARRATIVE: CASE EVENT DATE: 20200523
